FAERS Safety Report 12879343 (Version 2)
Quarter: 2017Q1

REPORT INFORMATION
  Report Type: Spontaneous
  Country: US (occurrence: US)
  Receive Date: 20161025
  Receipt Date: 20170306
  Transmission Date: 20170428
  Serious: Yes (Hospitalization)
  Sender: FDA-Public Use
  Company Number: US-ROCHE-1845990

PATIENT
  Age: 67 Year
  Sex: Female
  Weight: 74.46 kg

DRUGS (1)
  1. ALECENSA [Suspect]
     Active Substance: ALECTINIB HYDROCHLORIDE
     Indication: LUNG NEOPLASM MALIGNANT
     Dosage: 4 TABLETS PER DOSE
     Route: 048
     Dates: start: 20160711

REACTIONS (4)
  - Hypoaesthesia oral [Unknown]
  - Dyspnoea [Recovering/Resolving]
  - Peripheral swelling [Unknown]
  - Lung disorder [Recovering/Resolving]

NARRATIVE: CASE EVENT DATE: 20160928
